FAERS Safety Report 18284793 (Version 3)
Quarter: 2020Q4

REPORT INFORMATION
  Report Type: Report from Study
  Country: US (occurrence: US)
  Receive Date: 20200918
  Receipt Date: 20201109
  Transmission Date: 20210113
  Serious: Yes (Death, Hospitalization)
  Sender: FDA-Public Use
  Company Number: US-JNJFOC-A-NJ2017-151833

PATIENT
  Age: 38 Year
  Sex: Male
  Weight: 93.98 kg

DRUGS (3)
  1. OPSUMIT [Suspect]
     Active Substance: MACITENTAN
     Dosage: 10 MG, QD
     Route: 048
  2. OPSUMIT [Suspect]
     Active Substance: MACITENTAN
     Indication: PULMONARY ARTERIAL HYPERTENSION
     Dosage: UNK
     Route: 048
     Dates: start: 20160118
  3. TADALAFIL. [Concomitant]
     Active Substance: TADALAFIL

REACTIONS (12)
  - Fatigue [Recovered/Resolved]
  - Pain [Recovered/Resolved]
  - Death [Fatal]
  - Influenza [Recovered/Resolved]
  - Pyrexia [Recovered/Resolved]
  - Chills [Recovered/Resolved]
  - Ulcer [Unknown]
  - Hepatic failure [Unknown]
  - Oropharyngeal pain [Recovered/Resolved]
  - Liver disorder [Unknown]
  - Cough [Recovered/Resolved]
  - Liver function test [Unknown]

NARRATIVE: CASE EVENT DATE: 20170222
